FAERS Safety Report 23403272 (Version 1)
Quarter: 2024Q1

REPORT INFORMATION
  Report Type: Spontaneous
  Country: SG (occurrence: SG)
  Receive Date: 20240116
  Receipt Date: 20240116
  Transmission Date: 20240410
  Serious: No
  Sender: FDA-Public Use
  Company Number: SG-ALKEM LABORATORIES LIMITED-SG-ALKEM-2023-00852

PATIENT
  Age: 62 Year
  Sex: Male

DRUGS (1)
  1. CAPECITABINE [Suspect]
     Active Substance: CAPECITABINE
     Indication: Nasopharyngeal cancer
     Dosage: 3500 MG PER DAY DIVIDED INTO MORNING AND EVENING DOSES
     Route: 065

REACTIONS (2)
  - Dermatoglyphic anomaly [Unknown]
  - Palmar-plantar erythrodysaesthesia syndrome [Unknown]
